FAERS Safety Report 8836593 (Version 1)
Quarter: 2012Q4

REPORT INFORMATION
  Report Type: Spontaneous
  Country: DE (occurrence: None)
  Receive Date: 20121009
  Receipt Date: 20121009
  Transmission Date: 20130627
  Serious: Yes (Other)
  Sender: FDA-Public Use
  Company Number: 7163467

PATIENT
  Sex: Female

DRUGS (1)
  1. EUTHYROX [Suspect]
     Indication: DRUG USE FOR UNKNOWN INDICATION
     Dates: start: 2002

REACTIONS (5)
  - Carpal tunnel syndrome [None]
  - Dry skin [None]
  - Hair texture abnormal [None]
  - Alopecia [None]
  - Hypothyroidism [None]
